FAERS Safety Report 24741219 (Version 1)
Quarter: 2024Q4

REPORT INFORMATION
  Report Type: Spontaneous
  Country: US (occurrence: US)
  Receive Date: 20241217
  Receipt Date: 20241217
  Transmission Date: 20250114
  Serious: No
  Sender: APOTEX
  Company Number: US-APOTEX-2024AP019217

PATIENT
  Age: 18 Year
  Sex: Female

DRUGS (2)
  1. TRANEXAMIC ACID [Suspect]
     Active Substance: TRANEXAMIC ACID
     Indication: Heavy menstrual bleeding
     Dosage: 1300 MILLIGRAM, TID, AS NEEDED
     Route: 048
  2. TRANEXAMIC ACID [Suspect]
     Active Substance: TRANEXAMIC ACID
     Dosage: 1300 MILLIGRAM, TID
     Route: 048

REACTIONS (2)
  - Plasminogen decreased [Recovered/Resolved]
  - Ligneous conjunctivitis [Recovered/Resolved]
